FAERS Safety Report 6588325-5 (Version None)
Quarter: 2010Q1

REPORT INFORMATION
  Report Type: 
  Country: None (occurrence: None)
  Receive Date: 20100218
  Receipt Date: 20100209
  Transmission Date: 20100710
  Serious: Yes (Death, Hospitalization)
  Sender: FDA-Public Use
  Company Number: KR-ROCHE-639199

PATIENT
  Sex: Female
  Weight: 62 kg

DRUGS (19)
  1. CAPECITABINE [Suspect]
     Indication: METASTATIC GASTRIC CANCER
     Dosage: FREQUENCY: D1-D14 LAST DOSE PRIOR SAE: 20 MAY 2009
     Route: 048
     Dates: start: 20081119, end: 20090520
  2. CAPECITABINE [Suspect]
     Dosage: DAY 1- 14
     Route: 048
     Dates: start: 20090617
  3. CAPECITABINE [Suspect]
     Dosage: FROM DAY 1 TO DAY 14 OF CYCLE
     Route: 048
     Dates: start: 20091026, end: 20091109
  4. CAPECITABINE [Suspect]
     Dosage: DOSE DECREASED
     Route: 048
     Dates: start: 20091203
  5. CAPECITABINE [Suspect]
     Dosage: DAY 1-14
     Route: 048
     Dates: end: 20100120
  6. SUNITINIB MALATE [Suspect]
     Indication: METASTATIC GASTRIC CANCER
     Dosage: FREQUENCY: 2 WEEKS ON THEN 1 WEEK  LAST DOSE PRIOR SAE: 19 MAY 2009
     Route: 048
     Dates: start: 20081119, end: 20090519
  7. SUNITINIB MALATE [Suspect]
     Dosage: 2 WEEKS ON AND 1 WEEK OFF
     Route: 048
     Dates: start: 20090617
  8. SUNITINIB MALATE [Suspect]
     Dosage: 2 WEEKS ON TREATMENT FOLLOWED BY 1 WEEK OFF
     Route: 048
     Dates: start: 20091026, end: 20091108
  9. SUNITINIB MALATE [Suspect]
     Dosage: 2/1 SCHEDULE
     Route: 048
     Dates: start: 20091203, end: 20100120
  10. CISPLATIN [Suspect]
     Indication: METASTATIC GASTRIC CANCER
     Dosage: LAST DOSE PRIOR SAE: 06 MAY 2009. SOLUTION FOR INJECTION
     Route: 042
     Dates: start: 20081119, end: 20090506
  11. CISPLATIN [Suspect]
     Dosage: EVERY THREE WEEKS
     Route: 042
     Dates: start: 20090617
  12. CISPLATIN [Suspect]
     Route: 042
     Dates: end: 20091026
  13. CISPLATIN [Suspect]
     Dosage: THERAPY TEMPORARILY INTERRUPTED.
     Route: 042
     Dates: start: 20091203, end: 20100106
  14. SYNTHROID [Concomitant]
     Indication: HYPOTHYROIDISM
     Route: 048
     Dates: start: 20081101
  15. SYNTHROID [Concomitant]
     Route: 048
     Dates: start: 20090114
  16. FEROBA [Concomitant]
     Route: 048
     Dates: start: 20090304
  17. FEROBA [Concomitant]
     Route: 048
     Dates: start: 20090914
  18. MEGACE [Concomitant]
     Dates: start: 20090914
  19. CLEXANE [Concomitant]
     Dosage: OTHER INDICATION: DEEP VEIN THROMBOSIS
     Dates: start: 20090527, end: 20091104

REACTIONS (6)
  - ANAEMIA [None]
  - DEEP VEIN THROMBOSIS [None]
  - NEUTROPENIA [None]
  - PULMONARY EMBOLISM [None]
  - SUDDEN DEATH [None]
  - THROMBOCYTOPENIA [None]
